FAERS Safety Report 6996489-4 (Version None)
Quarter: 2010Q3

REPORT INFORMATION
  Report Type: 
  Country: None (occurrence: None)
  Receive Date: 20100918
  Receipt Date: 20090414
  Transmission Date: 20110219
  Serious: No
  Sender: FDA-Public Use
  Company Number: US-WYE-H08952309

PATIENT
  Sex: Female
  Weight: 71.73 kg

DRUGS (6)
  1. EFFEXOR [Suspect]
     Indication: DEPRESSION
     Route: 048
     Dates: start: 20040101, end: 20090405
  2. EFFEXOR [Suspect]
     Dosage: ^TAPERED OFF^
     Route: 048
     Dates: start: 20090406, end: 20090412
  3. LORAZEPAM [Concomitant]
  4. ALLEGRA [Concomitant]
  5. ATENOLOL [Concomitant]
  6. HYDROCHLOROTHIAZIDE [Concomitant]

REACTIONS (8)
  - ABNORMAL DREAMS [None]
  - AGITATION [None]
  - DIARRHOEA [None]
  - DIZZINESS [None]
  - DRUG WITHDRAWAL SYNDROME [None]
  - FEELING OF BODY TEMPERATURE CHANGE [None]
  - HYPERHIDROSIS [None]
  - MOTION SICKNESS [None]
